FAERS Safety Report 4428046-8 (Version None)
Quarter: 2004Q3

REPORT INFORMATION
  Report Type: 
  Country: None (occurrence: None)
  Receive Date: 20040813
  Receipt Date: 20040806
  Transmission Date: 20050211
  Serious: Yes (Other)
  Sender: FDA-Public Use
  Company Number: HQWYE123710AUG04

PATIENT
  Sex: Female
  Weight: 68.1 kg

DRUGS (3)
  1. EFFEXOR XR [Suspect]
     Indication: DEPRESSION
     Dosage: 300 MG 1X PER 1 DAY, ORAL
     Route: 048
     Dates: end: 20040801
  2. UNSPECIFIED ANALGESIC [Concomitant]
  3. DEXTROAMPHETAMINE SULFATE [Concomitant]

REACTIONS (5)
  - CONVULSION [None]
  - DRUG WITHDRAWAL SYNDROME [None]
  - FALL [None]
  - LOSS OF CONSCIOUSNESS [None]
  - TREATMENT NONCOMPLIANCE [None]
